FAERS Safety Report 9413174 (Version 1)
Quarter: 2013Q3

REPORT INFORMATION
  Report Type: Spontaneous
  Country: FR (occurrence: FR)
  Receive Date: 20130722
  Receipt Date: 20130722
  Transmission Date: 20140515
  Serious: Yes (Hospitalization)
  Sender: FDA-Public Use
  Company Number: PHHY2013FR077252

PATIENT
  Age: 48 Year
  Sex: Female

DRUGS (3)
  1. TEGRETOL [Suspect]
     Dosage: UNK UKN, UNK
     Route: 048
     Dates: start: 20130329, end: 20130510
  2. LAMICTAL [Suspect]
     Dosage: UNK UKN, UNK
     Route: 048
     Dates: start: 20130329, end: 201305
  3. ALEPSAL [Concomitant]
     Dosage: UNK UKN, UNK

REACTIONS (10)
  - Drug reaction with eosinophilia and systemic symptoms [Recovering/Resolving]
  - Pyrexia [Recovering/Resolving]
  - Tachycardia [Recovering/Resolving]
  - Rash morbilliform [Recovering/Resolving]
  - Lymphocytosis [Recovering/Resolving]
  - Inflammation [Recovering/Resolving]
  - Cell death [Recovering/Resolving]
  - Cholestasis [Recovering/Resolving]
  - Eosinophilia [Recovering/Resolving]
  - Pericardial effusion [Recovering/Resolving]
